FAERS Safety Report 7052682-6 (Version None)
Quarter: 2010Q4

REPORT INFORMATION
  Report Type: 
  Country: None (occurrence: None)
  Receive Date: 20101008
  Receipt Date: 20100928
  Transmission Date: 20110411
  Serious: Yes (Other)
  Sender: FDA-Public Use
  Company Number: 2010SP052622

PATIENT
  Sex: Female

DRUGS (2)
  1. SAPHRIS [Suspect]
     Indication: BIPOLAR DISORDER
     Dosage: 5 MG; SL
     Route: 060
     Dates: start: 20100817, end: 20100819
  2. SAPHRIS [Suspect]
     Indication: SCHIZOPHRENIA
     Dosage: 5 MG; SL
     Route: 060
     Dates: start: 20100817, end: 20100819

REACTIONS (3)
  - FEAR [None]
  - PARANOIA [None]
  - SUICIDAL IDEATION [None]
